FAERS Safety Report 8450600 (Version 3)
Quarter: 2013Q2

REPORT INFORMATION
  Report Type: Spontaneous
  Country: US (occurrence: None)
  Receive Date: 20120229
  Receipt Date: 20120523
  Transmission Date: 20140414
  Serious: Yes (Other)
  Sender: FDA-Public Use
  Company Number: US-2011-10008

PATIENT
  Age: 42 Year
  Sex: Female

DRUGS (1)
  1. SAMSCA [Suspect]
     Dosage: 30 MG MILLIGRAM(S), DAILY DOSE, ORAL
     Route: 048

REACTIONS (2)
  - DYSGEUSIA [None]
  - Dysgeusia [None]
